FAERS Safety Report 15101787 (Version 12)
Quarter: 2021Q2

REPORT INFORMATION
  Report Type: Spontaneous
  Country: CA (occurrence: CA)
  Receive Date: 20180703
  Receipt Date: 20210512
  Transmission Date: 20210716
  Serious: Yes (Death, Hospitalization, Other)
  Sender: FDA-Public Use
  Company Number: CA-PFIZER INC-2018176301

PATIENT
  Age: 55 Year
  Sex: Male
  Weight: 72 kg

DRUGS (16)
  1. REVATIO [Suspect]
     Active Substance: SILDENAFIL CITRATE
     Indication: PULMONARY ARTERIAL HYPERTENSION
     Dosage: 20 MG, 3X/DAY
     Route: 048
     Dates: start: 20180517
  2. PANTOPRAZOLE [Concomitant]
     Active Substance: PANTOPRAZOLE
     Dosage: UNK
  3. SPIRONOLACTONE. [Concomitant]
     Active Substance: SPIRONOLACTONE
     Dosage: UNK
  4. LANTUS [Concomitant]
     Active Substance: INSULIN GLARGINE
     Dosage: UNK
  5. ATENOLOL. [Concomitant]
     Active Substance: ATENOLOL
     Dosage: UNK
  6. HALOPERIDOL. [Concomitant]
     Active Substance: HALOPERIDOL
     Dosage: UNK
  7. SENOKOT [Concomitant]
     Active Substance: SENNOSIDES
     Dosage: UNK
  8. FUROSEMIDE. [Concomitant]
     Active Substance: FUROSEMIDE
     Dosage: UNK
  9. ZAXINE [Concomitant]
     Active Substance: RIFAXIMIN
     Dosage: UNK
  10. UPTRAVI [Concomitant]
     Active Substance: SELEXIPAG
     Dosage: 1200 UG, UNK
  11. MACITENTAN [Concomitant]
     Active Substance: MACITENTAN
     Dosage: UNK
  12. CIPROFLOXACIN. [Concomitant]
     Active Substance: CIPROFLOXACIN
     Dosage: UNK
  13. UPTRAVI [Concomitant]
     Active Substance: SELEXIPAG
     Dosage: UNK
  14. FOLIC ACID. [Concomitant]
     Active Substance: FOLIC ACID
     Dosage: UNK
  15. CLOZAPINE. [Concomitant]
     Active Substance: CLOZAPINE
     Dosage: UNK
  16. NADOLOL. [Concomitant]
     Active Substance: NADOLOL
     Dosage: UNK

REACTIONS (9)
  - Death [Fatal]
  - Myalgia [Recovered/Resolved]
  - Diabetes mellitus inadequate control [Unknown]
  - Retching [Not Recovered/Not Resolved]
  - Diarrhoea [Recovered/Resolved]
  - Vomiting [Unknown]
  - Renal impairment [Unknown]
  - Nausea [Not Recovered/Not Resolved]
  - Headache [Recovered/Resolved]

NARRATIVE: CASE EVENT DATE: 20180824
